FAERS Safety Report 15182992 (Version 2)
Quarter: 2018Q3

REPORT INFORMATION
  Report Type: Spontaneous
  Country: PT (occurrence: PT)
  Receive Date: 20180723
  Receipt Date: 20180730
  Transmission Date: 20181010
  Serious: Yes (Other)
  Sender: FDA-Public Use
  Company Number: PT-JNJFOC-20180716615

PATIENT
  Age: 68 Year
  Sex: Male

DRUGS (2)
  1. XEPLION [Suspect]
     Active Substance: PALIPERIDONE PALMITATE
     Indication: PSYCHOTIC SYMPTOM
     Route: 030
     Dates: start: 201806
  2. XEPLION [Suspect]
     Active Substance: PALIPERIDONE PALMITATE
     Indication: PSYCHOTIC SYMPTOM
     Route: 030
     Dates: start: 20180705

REACTIONS (3)
  - Psychotic symptom [Not Recovered/Not Resolved]
  - Electrocardiogram QT prolonged [Unknown]
  - Drug prescribing error [Unknown]

NARRATIVE: CASE EVENT DATE: 2018
